FAERS Safety Report 6034794-9 (Version None)
Quarter: 2009Q1

REPORT INFORMATION
  Report Type: 
  Country: None (occurrence: None)
  Receive Date: 20090112
  Receipt Date: 20090108
  Transmission Date: 20090719
  Serious: Yes (Life-Threatening, Hospitalization)
  Sender: FDA-Public Use
  Company Number: US-JNJFOC-20090101651

PATIENT
  Sex: Male
  Weight: 102.06 kg

DRUGS (14)
  1. FENTANYL TRANSDERMAL SYSTEM [Suspect]
     Indication: ARTHRITIS
     Dosage: ARTHRITIS DISC
     Route: 062
  2. UNKNOWN MEDICATION [Concomitant]
     Indication: CARDIAC DISORDER
     Route: 048
  3. XANAX [Concomitant]
     Indication: NERVOUS SYSTEM DISORDER
     Dosage: PRE-EXISTING NERVE PROBLEMS
     Route: 048
  4. DIOVAN HCT [Concomitant]
     Indication: HYPERTENSION
     Dosage: 320/25MG
     Route: 048
  5. HYDROCHLOROTHIAZIDE [Concomitant]
     Indication: FLUID RETENTION
     Dosage: PRE-EXISTING ^FLUID^
     Route: 048
  6. PERCOCET [Concomitant]
     Indication: PAIN
     Dosage: 10-325MG AS NEEDED
     Route: 048
  7. METOPROLOL TARTRATE [Concomitant]
     Indication: HYPERTENSION
     Route: 048
  8. TRAZODONE HCL [Concomitant]
     Indication: SLEEP DISORDER THERAPY
     Route: 048
  9. CYMBALTA [Concomitant]
     Indication: DEPRESSION
     Route: 048
  10. CLONIDINE [Concomitant]
     Indication: HYPERTENSION
     Route: 048
  11. ASPIRIN [Concomitant]
     Indication: CARDIAC DISORDER
     Route: 048
  12. NEURONTIN [Concomitant]
     Indication: PAIN
     Route: 048
  13. RANTIDINE [Concomitant]
     Indication: GASTRIC DISORDER
     Route: 048
  14. PLAVIK [Concomitant]
     Indication: CARDIAC DISORDER
     Route: 048

REACTIONS (2)
  - INTRACRANIAL ANEURYSM [None]
  - PULMONARY THROMBOSIS [None]
